FAERS Safety Report 24418048 (Version 3)
Quarter: 2025Q3

REPORT INFORMATION
  Report Type: Report from Study
  Country: BR (occurrence: BR)
  Receive Date: 20241009
  Receipt Date: 20250803
  Transmission Date: 20251021
  Serious: Yes (Hospitalization, Other)
  Sender: ALEXION PHARMACEUTICALS
  Company Number: BR-AstraZeneca-2024A189343

PATIENT
  Age: 36 Year
  Sex: Female
  Weight: 133 kg

DRUGS (19)
  1. FASENRA [Suspect]
     Active Substance: BENRALIZUMAB
  2. TEZEPELUMAB [Suspect]
     Active Substance: TEZEPELUMAB
     Indication: Asthma
     Dosage: 210 MILLIGRAM, Q4W
  3. TEZEPELUMAB [Suspect]
     Active Substance: TEZEPELUMAB
  4. LEVOTHYROXINE [Concomitant]
     Active Substance: LEVOTHYROXINE
     Indication: Thyroid disorder
  5. Fostair dpi [Concomitant]
  6. SPIRIVA RESPIMAT [Concomitant]
     Active Substance: TIOTROPIUM BROMIDE
  7. ALBUTEROL [Concomitant]
     Active Substance: ALBUTEROL
  8. MONTELUKAST SODIUM [Concomitant]
     Active Substance: MONTELUKAST SODIUM
  9. PREDNISONE [Concomitant]
     Active Substance: PREDNISONE
  10. LEUCOGEN [Concomitant]
     Active Substance: LEUCOGEN
  11. FUROSEMIDE [Concomitant]
     Active Substance: FUROSEMIDE
  12. VENLAFAXINE [Concomitant]
     Active Substance: VENLAFAXINE HYDROCHLORIDE
  13. BELARINA [Concomitant]
  14. VITAMIN D [Concomitant]
     Active Substance: VITAMIN D NOS
  15. DOMPERIDONE [Concomitant]
     Active Substance: DOMPERIDONE
  16. AMIODARONE [Concomitant]
     Active Substance: AMIODARONE
  17. CALCIUM [Concomitant]
     Active Substance: CALCIUM
  18. ACETAMINOPHEN [Concomitant]
     Active Substance: ACETAMINOPHEN
     Indication: Pyrexia
  19. BACTRIM [Concomitant]
     Active Substance: SULFAMETHOXAZOLE\TRIMETHOPRIM

REACTIONS (6)
  - Pneumonia [Recovering/Resolving]
  - Asthmatic crisis [Recovering/Resolving]
  - Headache [Recovered/Resolved]
  - Malaise [Recovered/Resolved]
  - Pain [Recovered/Resolved]
  - Arthralgia [Recovered/Resolved]

NARRATIVE: CASE EVENT DATE: 20240830
